FAERS Safety Report 12582242 (Version 1)
Quarter: 2016Q3

REPORT INFORMATION
  Report Type: Spontaneous
  Country: FR (occurrence: FR)
  Receive Date: 20160722
  Receipt Date: 20160722
  Transmission Date: 20161109
  Serious: Yes (Other)
  Sender: FDA-Public Use
  Company Number: FR-ROCHE-1799931

PATIENT
  Age: 32 Year
  Sex: Female

DRUGS (7)
  1. MABTHERA [Suspect]
     Active Substance: RITUXIMAB
     Indication: EXTRANODAL MARGINAL ZONE B-CELL LYMPHOMA (MALT TYPE)
     Dosage: SECOND CYCLE
     Route: 058
     Dates: start: 20160427, end: 20160427
  2. DAFALGAN [Concomitant]
     Active Substance: ACETAMINOPHEN
  3. CHLORAMINOPHENE [Concomitant]
     Active Substance: CHLORAMBUCIL
  4. TARDYFERON (FRANCE) [Concomitant]
  5. MABTHERA [Concomitant]
     Active Substance: RITUXIMAB
     Dosage: THIRD CYCLE
     Route: 042
     Dates: start: 20160527
  6. SPIFEN [Concomitant]
     Active Substance: IBUPROFEN
  7. MABTHERA [Concomitant]
     Active Substance: RITUXIMAB
     Dosage: FIRST CYCLE
     Route: 042
     Dates: start: 201603

REACTIONS (2)
  - Injection site erythema [Recovered/Resolved]
  - Injection site pain [Recovered/Resolved]

NARRATIVE: CASE EVENT DATE: 20160427
